FAERS Safety Report 4830761-9 (Version None)
Quarter: 2005Q4

REPORT INFORMATION
  Report Type: 
  Country: None (occurrence: None)
  Receive Date: 20051117
  Receipt Date: 20050930
  Transmission Date: 20060501
  Serious: Yes (Hospitalization)
  Sender: FDA-Public Use
  Company Number: US-MERCK-0510USA01959

PATIENT
  Age: 58 Year
  Sex: Female
  Weight: 89 kg

DRUGS (7)
  1. VIOXX [Suspect]
     Indication: JOINT SWELLING
     Route: 048
     Dates: start: 20010607, end: 20040228
  2. ASPIRIN [Concomitant]
     Route: 065
  3. ATENOLOL [Concomitant]
     Route: 065
  4. HYDROCHLOROTHIAZIDE [Concomitant]
     Route: 065
  5. NITROGLYCERIN [Concomitant]
     Route: 065
  6. PRAVACHOL [Concomitant]
     Route: 065
  7. TYLENOL (CAPLET) [Concomitant]
     Route: 065

REACTIONS (2)
  - DEPRESSION [None]
  - MYOCARDIAL INFARCTION [None]
